FAERS Safety Report 24260571 (Version 3)
Quarter: 2024Q3

REPORT INFORMATION
  Report Type: Spontaneous
  Country: US (occurrence: US)
  Receive Date: 20240828
  Receipt Date: 20240906
  Transmission Date: 20241016
  Serious: Yes (Other)
  Sender: PHARMING GROUP
  Company Number: US-PHARMING-PHAUS2024000634

PATIENT

DRUGS (9)
  1. RUCONEST [Suspect]
     Active Substance: CONESTAT ALFA
     Indication: Hereditary angioedema
     Dosage: 4200 IU, WEEKLY SCHEDULE PREVENTATIVELY FOR HIS HAE ATTACKS
     Route: 042
     Dates: start: 20150529
  2. RUCONEST [Suspect]
     Active Substance: CONESTAT ALFA
     Dosage: 4100 IU, WEEKLY SCHEDULE PREVENTATIVELY FOR HIS HAE ATTACKS
     Route: 042
     Dates: start: 20160502
  3. RUCONEST [Suspect]
     Active Substance: CONESTAT ALFA
     Dosage: 4200 IU, WEEKLY SCHEDULE PREVENTATIVELY FOR HIS HAE ATTACKS
     Route: 042
     Dates: start: 20150529
  4. EPINEPHRINE [Concomitant]
     Active Substance: EPINEPHRINE
     Indication: Product used for unknown indication
  5. BROMELAINS [Concomitant]
     Active Substance: BROMELAINS
     Indication: Product used for unknown indication
  6. SUPER B COMPLEX                    /01995301/ [Concomitant]
     Indication: Product used for unknown indication
  7. ATORVASTATIN CALCIUM [Concomitant]
     Active Substance: ATORVASTATIN CALCIUM
     Indication: Product used for unknown indication
  8. CHLORTHALIDONE [Concomitant]
     Active Substance: CHLORTHALIDONE
     Indication: Product used for unknown indication
  9. ASPIRIN [Concomitant]
     Active Substance: ASPIRIN
     Indication: Product used for unknown indication

REACTIONS (3)
  - Diverticulitis [Recovered/Resolved]
  - Heat stroke [Recovering/Resolving]
  - Product use in unapproved indication [Unknown]

NARRATIVE: CASE EVENT DATE: 20240719
